FAERS Safety Report 23617113 (Version 1)
Quarter: 2024Q1

REPORT INFORMATION
  Report Type: Spontaneous
  Country: US (occurrence: None)
  Receive Date: 20240309
  Receipt Date: 20240309
  Transmission Date: 20240409
  Serious: No
  Sender: FDA-Public Use
  Company Number: None

PATIENT
  Age: 67 Year
  Sex: Female
  Weight: 94.95 kg

DRUGS (11)
  1. KLOR-CON M [Suspect]
     Active Substance: POTASSIUM CHLORIDE
     Indication: Blood potassium decreased
     Dates: start: 20240306
  2. NOVOLOG [Concomitant]
     Active Substance: INSULIN ASPART
  3. BUMETANIDE [Concomitant]
     Active Substance: BUMETANIDE
  4. DOCUSATE [Concomitant]
     Active Substance: DOCUSATE
  5. VITAMIN D [Concomitant]
     Active Substance: VITAMIN D NOS
  6. METOLAZONE [Concomitant]
     Active Substance: METOLAZONE
  7. DILTIAZEM [Concomitant]
     Active Substance: DILTIAZEM
  8. ARMOUR THYROID [Concomitant]
     Active Substance: THYROID, PORCINE
  9. THYROID [Concomitant]
     Active Substance: LEVOTHYROXINE\LIOTHYRONINE
  10. DEVICE [Concomitant]
     Active Substance: DEVICE
  11. DEVICE [Concomitant]
     Active Substance: DEVICE

REACTIONS (1)
  - Chest pain [None]

NARRATIVE: CASE EVENT DATE: 20240308
